FAERS Safety Report 11090224 (Version 1)
Quarter: 2015Q2

REPORT INFORMATION
  Report Type: Spontaneous
  Country: US (occurrence: None)
  Receive Date: 20150504
  Receipt Date: 20150504
  Transmission Date: 20150821
  Serious: No
  Sender: FDA-Public Use
  Company Number: None

PATIENT
  Age: 51 Year
  Sex: Male
  Weight: 83.92 kg

DRUGS (9)
  1. HUMIRA [Suspect]
     Active Substance: ADALIMUMAB
     Indication: PSORIASIS
     Dosage: GIVEN  INTO/UNDER THE SKIN
     Dates: start: 20080101, end: 20150503
  2. VIAGRA [Concomitant]
     Active Substance: SILDENAFIL CITRATE
  3. ALFUZOSIN [Concomitant]
     Active Substance: ALFUZOSIN
  4. ADVIL [Concomitant]
     Active Substance: IBUPROFEN
  5. CONCERTA [Concomitant]
     Active Substance: METHYLPHENIDATE HYDROCHLORIDE
  6. CIALIS [Concomitant]
     Active Substance: TADALAFIL
  7. BENAZEPRIL [Concomitant]
     Active Substance: BENAZEPRIL\BENAZEPRIL HYDROCHLORIDE
  8. PLEGINE [Concomitant]
     Active Substance: PHENDIMETRAZINE TARTRATE
  9. ASPIRIN. [Concomitant]
     Active Substance: ASPIRIN

REACTIONS (3)
  - Pain [None]
  - Pruritus [None]
  - Anal fissure [None]

NARRATIVE: CASE EVENT DATE: 20150503
